FAERS Safety Report 4443452-3 (Version None)
Quarter: 2004Q3

REPORT INFORMATION
  Report Type: 
  Country: None (occurrence: None)
  Receive Date: 20040908
  Receipt Date: 20031016
  Transmission Date: 20050211
  Serious: No
  Sender: FDA-Public Use
  Company Number: US-GLAXOSMITHKLINE-A0430612A

PATIENT
  Age: 8 Year
  Sex: Male

DRUGS (2)
  1. LAMICTAL [Suspect]
     Dosage: 40MG TWICE PER DAY
     Route: 048
  2. DEPAKOTE [Concomitant]

REACTIONS (1)
  - PRURITUS [None]
